FAERS Safety Report 6860934-5 (Version None)
Quarter: 2010Q3

REPORT INFORMATION
  Report Type: 
  Country: None (occurrence: None)
  Receive Date: 20100716
  Receipt Date: 20100630
  Transmission Date: 20110219
  Serious: Yes (Other)
  Sender: FDA-Public Use
  Company Number: 2010S1004139

PATIENT
  Sex: Female

DRUGS (4)
  1. PHOSPHOSODA FLAVOR NOT SPECIFIED [Suspect]
     Indication: COLONOSCOPY
     Dosage: 90 ML; TOTAL; PO
     Route: 048
     Dates: start: 20040101, end: 20040101
  2. VITAMIN TAB [Concomitant]
  3. FOSAMAX [Concomitant]
  4. K -DUR [Concomitant]

REACTIONS (1)
  - RENAL IMPAIRMENT [None]
